FAERS Safety Report 6296252-6 (Version None)
Quarter: 2009Q3

REPORT INFORMATION
  Report Type: 
  Country: None (occurrence: None)
  Receive Date: 20090803
  Receipt Date: 20090803
  Transmission Date: 20100115
  Serious: Yes (Other)
  Sender: FDA-Public Use
  Company Number: None

PATIENT
  Sex: Female
  Weight: 76.2 kg

DRUGS (6)
  1. SORAFENIB 200 MG BAYER [Suspect]
     Indication: BREAST CANCER METASTATIC
     Dosage: 200 MG DAILY PO
     Route: 048
     Dates: start: 20090429, end: 20090729
  2. VINORELBINE [Suspect]
     Indication: BREAST CANCER METASTATIC
     Dosage: 20 MG/M2 WEEKLY X 3 IV
     Route: 042
     Dates: start: 20090429, end: 20090729
  3. AMLODIPINE [Concomitant]
  4. CENTRUM SILVER MULTIVITAMINS [Concomitant]
  5. TENORMIN [Concomitant]
  6. EXTRA STRENGTH TYLENOL [Concomitant]

REACTIONS (2)
  - CATHETER RELATED COMPLICATION [None]
  - JUGULAR VEIN THROMBOSIS [None]
